FAERS Safety Report 4735194-1 (Version None)
Quarter: 2005Q3

REPORT INFORMATION
  Report Type: 
  Country: None (occurrence: None)
  Receive Date: 20050804
  Receipt Date: 20050725
  Transmission Date: 20060218
  Serious: Yes (Disabling, Other)
  Sender: FDA-Public Use
  Company Number: 2005106351

PATIENT
  Age: 79 Year
  Sex: Male
  Weight: 81.6475 kg

DRUGS (12)
  1. LIPITOR [Suspect]
     Indication: BLOOD CHOLESTEROL
     Dosage: 20 MG (20 MG, 1 IN 1 D)
  2. ACETYLSALICYLIC ACID SRT [Concomitant]
  3. CHROMIUM PICOLINATE (CHROMIUM PICOLINATE) [Concomitant]
  4. ZINC (ZINC) [Concomitant]
  5. NIACIN [Concomitant]
  6. SELENIUM (SELENIUM) [Concomitant]
  7. VITAMIN C (VITAMIN C) [Concomitant]
  8. GARLIC (GARLIC) [Concomitant]
  9. MULTIVITAMIN [Concomitant]
  10. VITAMIN E [Concomitant]
  11. FISH OIL (FISH OIL) [Concomitant]
  12. SAW PALMETTO (SAW PALMETTO) [Concomitant]

REACTIONS (4)
  - ALOPECIA [None]
  - CATARACT [None]
  - EYE HAEMORRHAGE [None]
  - MACULAR DEGENERATION [None]
